FAERS Safety Report 11044940 (Version 4)
Quarter: 2016Q4

REPORT INFORMATION
  Report Type: Spontaneous
  Country: US (occurrence: US)
  Receive Date: 20150417
  Receipt Date: 20161108
  Transmission Date: 20170206
  Serious: No
  Sender: FDA-Public Use
  Company Number: US-009507513-1504USA017080

PATIENT
  Sex: Male

DRUGS (1)
  1. PROPECIA [Suspect]
     Active Substance: FINASTERIDE
     Indication: ALOPECIA
     Dosage: 1 MG, QD
     Route: 048
     Dates: start: 199905, end: 201311

REACTIONS (20)
  - Sexual dysfunction [Not Recovered/Not Resolved]
  - Emotional distress [Not Recovered/Not Resolved]
  - Insomnia [Recovering/Resolving]
  - Anxiety [Not Recovered/Not Resolved]
  - Erectile dysfunction [Not Recovered/Not Resolved]
  - Fatigue [Not Recovered/Not Resolved]
  - Acute sinusitis [Unknown]
  - Hypertension [Unknown]
  - Muscular weakness [Unknown]
  - Affective disorder [Unknown]
  - Irritable bowel syndrome [Unknown]
  - Libido decreased [Not Recovered/Not Resolved]
  - Hyperlipidaemia [Unknown]
  - Back pain [Unknown]
  - Blood testosterone decreased [Unknown]
  - Osteoarthritis [Unknown]
  - Nocturia [Unknown]
  - Depression [Not Recovered/Not Resolved]
  - Primary hypogonadism [Unknown]
  - Weight increased [Unknown]

NARRATIVE: CASE EVENT DATE: 199905
